FAERS Safety Report 21160562 (Version 1)
Quarter: 2022Q3

REPORT INFORMATION
  Report Type: Spontaneous
  Country: US (occurrence: None)
  Receive Date: 20220801
  Receipt Date: 20220801
  Transmission Date: 20221027
  Serious: Yes (Other)
  Sender: FDA-Public Use
  Company Number: None

PATIENT
  Age: 36 Year
  Sex: Female
  Weight: 60.75 kg

DRUGS (6)
  1. NEUTROGENA INVISIBLE DAILY DEFENSE BROAD SPECTRUM SPF 30 [Suspect]
     Active Substance: AVOBENZONE\HOMOSALATE\OCTISALATE\OCTOCRYLENE
     Indication: Prophylaxis against solar radiation
     Dosage: OTHER STRENGTH : OUNCE;?OTHER QUANTITY : 1 OUNCE(S);?OTHER FREQUENCY : AS NEEDED FOR SUN;?
     Route: 061
     Dates: start: 20220721, end: 20220731
  2. LO LOESTRIN FE [Concomitant]
     Active Substance: ETHINYL ESTRADIOL\NORETHINDRONE ACETATE
  3. OMEPRAZOLE [Concomitant]
     Active Substance: OMEPRAZOLE
  4. FLONASE [Concomitant]
     Active Substance: FLUTICASONE PROPIONATE
  5. AZELASTINE [Concomitant]
     Active Substance: AZELASTINE
  6. LORATADINE [Concomitant]
     Active Substance: LORATADINE

REACTIONS (1)
  - Application site hypersensitivity [None]

NARRATIVE: CASE EVENT DATE: 20220721
